FAERS Safety Report 11844820 (Version 2)
Quarter: 2016Q1

REPORT INFORMATION
  Report Type: Spontaneous
  Country: US (occurrence: US)
  Receive Date: 20151217
  Receipt Date: 20160113
  Transmission Date: 20160526
  Serious: Yes (Hospitalization)
  Sender: FDA-Public Use
  Company Number: US-LPDUSPRD-20151001

PATIENT
  Age: 18 Year
  Sex: Male

DRUGS (2)
  1. CALCIUM GLUCONATE INJECTION, USP (3900-25) [Suspect]
     Active Substance: CALCIUM GLUCONATE
     Dosage: DOSE UNKNOWN
     Route: 042
  2. TOTAL PARENTERAL NUTRITION [Concomitant]
     Active Substance: UNSPECIFIED INGREDIENT
     Dosage: DOSE UNKNOWN
     Route: 042

REACTIONS (2)
  - Cardiomyopathy [Recovered/Resolved]
  - Hypercalcaemia [Recovered/Resolved]
